FAERS Safety Report 8903556 (Version 1)
Quarter: 2012Q4

REPORT INFORMATION
  Report Type: 
  Country: SE (occurrence: SE)
  Receive Date: 20121112
  Receipt Date: 20121112
  Transmission Date: 20130627
  Serious: Yes (Hospitalization)
  Sender: FDA-Public Use
  Company Number: SE-PFIZER INC-2012278584

PATIENT
  Age: 52 Year
  Sex: Female
  Weight: 71.4 kg

DRUGS (6)
  1. GENOTROPIN [Suspect]
     Indication: GROWTH HORMONE DEFICIENCY
     Dosage: 0.47 mg, 1x/day, 7 injections/week
     Route: 058
     Dates: start: 19990330
  2. KLIOGEST ^NOVO INDUSTRI^ [Concomitant]
     Indication: LUTEINISING HORMONE DEFICIENCY
     Dosage: UNK
     Dates: start: 19980501
  3. KLIOGEST ^NOVO INDUSTRI^ [Concomitant]
     Indication: FOLLICLE-STIMULATING HORMONE DEFICIENCY
  4. KLIOGEST ^NOVO INDUSTRI^ [Concomitant]
     Indication: HYPOGONADISM FEMALE
  5. LEVOTHYROXINE [Concomitant]
     Indication: TSH DECREASED
     Dosage: UNK
     Dates: start: 19900801
  6. LEVOTHYROXINE [Concomitant]
     Indication: PRIMARY HYPOTHYROIDISM

REACTIONS (1)
  - Chondromalacia [Unknown]
